FAERS Safety Report 8834604 (Version 1)
Quarter: 2012Q4

REPORT INFORMATION
  Report Type: 
  Country: JP (occurrence: JP)
  Receive Date: 20121010
  Receipt Date: 20121010
  Transmission Date: 20130627
  Serious: Yes (Hospitalization)
  Sender: FDA-Public Use
  Company Number: JP-TEVA-362700ISR

PATIENT
  Age: 78 Year
  Sex: Male

DRUGS (5)
  1. GEMCITABINE [Suspect]
     Indication: PANCREATIC CARCINOMA METASTATIC
     Dosage: 5 cycles
     Route: 065
  2. TEGAFUR [Suspect]
     Indication: PANCREATIC CARCINOMA METASTATIC
     Route: 065
  3. GIMERACIL [Suspect]
     Indication: PANCREATIC CARCINOMA METASTATIC
     Route: 065
  4. OTERACIL [Suspect]
     Indication: PANCREATIC CARCINOMA METASTATIC
     Route: 065
  5. OCTREOTIDE [Suspect]
     Indication: PANCREATIC CARCINOMA METASTATIC
     Route: 065

REACTIONS (1)
  - Pyogenic granuloma [Recovered/Resolved]
